FAERS Safety Report 10345881 (Version 1)
Quarter: 2014Q3

REPORT INFORMATION
  Report Type: Spontaneous
  Country: FR (occurrence: FR)
  Receive Date: 20140728
  Receipt Date: 20140728
  Transmission Date: 20150326
  Serious: Yes (Hospitalization)
  Sender: FDA-Public Use
  Company Number: FR-TEVA-495071ISR

PATIENT
  Age: 72 Year
  Sex: Female

DRUGS (2)
  1. EFFENTORA 200 MICROGRAMS [Suspect]
     Active Substance: FENTANYL CITRATE
     Dosage: 800 MICROGRAM DAILY; 1 DF EVERY 6 HOURS IF NEEDED
     Route: 002
     Dates: start: 20131001, end: 20131216
  2. DUROGESIC 100 MICROGRAMS/HOUR (16.8MG/42 CM2) [Suspect]
     Active Substance: FENTANYL
     Dosage: PROGESSIVE INCREASE FROM 50 MICROGRAMS/HOUR TO 100MICROGRAMS/HOUR
     Route: 003
     Dates: start: 20131001, end: 20131216

REACTIONS (3)
  - Disorientation [Recovered/Resolved]
  - Tremor [Recovered/Resolved]
  - Agitation [Recovered/Resolved]

NARRATIVE: CASE EVENT DATE: 20131216
